FAERS Safety Report 22615524 (Version 2)
Quarter: 2023Q2

REPORT INFORMATION
  Report Type: Spontaneous
  Country: US (occurrence: US)
  Receive Date: 20230619
  Receipt Date: 20230621
  Transmission Date: 20230722
  Serious: Yes (Other)
  Sender: FDA-Public Use
  Company Number: US-MLMSERVICE-20230522-4298738-1

PATIENT
  Age: 68 Year
  Sex: Male

DRUGS (1)
  1. PACLITAXEL [Suspect]
     Active Substance: PACLITAXEL
     Indication: Hepatic angiosarcoma
     Dosage: UNK

REACTIONS (3)
  - Hepatic function abnormal [Unknown]
  - Condition aggravated [Unknown]
  - Off label use [Unknown]
